FAERS Safety Report 22377680 (Version 1)
Quarter: 2023Q2

REPORT INFORMATION
  Report Type: Spontaneous
  Country: CZ (occurrence: CZ)
  Receive Date: 20230529
  Receipt Date: 20230529
  Transmission Date: 20230722
  Serious: Yes (Hospitalization, Other)
  Sender: FDA-Public Use
  Company Number: CZ-CZSUKL-23001862

PATIENT
  Age: 59 Year
  Sex: Male

DRUGS (1)
  1. ACETAMINOPHEN [Suspect]
     Active Substance: ACETAMINOPHEN
     Indication: Product used for unknown indication
     Dosage: 6 GRAM
     Route: 065

REACTIONS (3)
  - Abdominal pain [Unknown]
  - Accidental overdose [Unknown]
  - Medication error [Unknown]

NARRATIVE: CASE EVENT DATE: 20210101
